FAERS Safety Report 10219765 (Version 1)
Quarter: 2014Q2

REPORT INFORMATION
  Report Type: Spontaneous
  Country: GB (occurrence: GB)
  Receive Date: 20140605
  Receipt Date: 20140605
  Transmission Date: 20141212
  Serious: Yes (Other)
  Sender: FDA-Public Use
  Company Number: GB-ACTAVISPR-2014-12468

PATIENT
  Age: 74 Year
  Sex: Male

DRUGS (7)
  1. GABAPENTIN ACTAVIS [Suspect]
     Indication: NEURALGIA
     Dosage: 300 MG, BID
     Route: 048
  2. GABAPENTIN ACTAVIS [Suspect]
     Dosage: 300 MG, DAILY
     Route: 048
  3. GABAPENTIN ACTAVIS [Suspect]
     Dosage: 300 MG, TID
     Route: 048
  4. PRAVASTATIN [Concomitant]
     Indication: PRODUCT USED FOR UNKNOWN INDICATION
     Dosage: 10 MG, DAILY
     Route: 065
  5. TAMSULOSIN HCL [Concomitant]
     Indication: PRODUCT USED FOR UNKNOWN INDICATION
     Dosage: 400 MG, DAILY
     Route: 065
  6. CALCIUM + VITAMIN D                /01483701/ [Concomitant]
     Indication: CALCIUM DEFICIENCY
     Dosage: UNK
     Route: 065
  7. CETIRIZINE [Concomitant]
     Indication: SEASONAL ALLERGY
     Dosage: 10 MG, DAILY
     Route: 065

REACTIONS (4)
  - Depressed mood [Unknown]
  - Mental impairment [Unknown]
  - Somnolence [Unknown]
  - Fatigue [Unknown]
